FAERS Safety Report 13903235 (Version 1)
Quarter: 2017Q3

REPORT INFORMATION
  Report Type: Spontaneous
  Country: US (occurrence: US)
  Receive Date: 20170824
  Receipt Date: 20170824
  Transmission Date: 20171127
  Serious: No
  Sender: FDA-Public Use
  Company Number: GXBR2017US002264

PATIENT
  Sex: Male
  Weight: 108.84 kg

DRUGS (1)
  1. CLONAZEPAM TABLETS, USP [Suspect]
     Active Substance: CLONAZEPAM
     Indication: ANXIETY
     Dosage: UNK
     Route: 065

REACTIONS (4)
  - Drug screen negative [Unknown]
  - Movement disorder [Unknown]
  - Malaise [Unknown]
  - Abdominal discomfort [Unknown]
